FAERS Safety Report 16163015 (Version 1)
Quarter: 2019Q2

REPORT INFORMATION
  Report Type: Spontaneous
  Country: US (occurrence: US)
  Receive Date: 20190302
  Receipt Date: 20190302
  Transmission Date: 20190711
  Serious: Yes (Death, Hospitalization)
  Sender: FDA-Public Use
  Company Number: None

PATIENT
  Age: 15 Year
  Sex: Female
  Weight: 93.2 kg

DRUGS (6)
  1. DAUNORUBICIN [Suspect]
     Active Substance: DAUNORUBICIN
     Dates: end: 20190221
  2. PREDNISONE. [Suspect]
     Active Substance: PREDNISONE
     Dates: end: 20190225
  3. ONCASPAR [Suspect]
     Active Substance: PEGASPARGASE
     Dates: end: 20190203
  4. VINCRISTINE SULFATE. [Suspect]
     Active Substance: VINCRISTINE SULFATE
     Dates: end: 20190221
  5. CYTARABINE. [Suspect]
     Active Substance: CYTARABINE
     Dates: end: 20190214
  6. METHOTREXATE. [Suspect]
     Active Substance: METHOTREXATE
     Dates: end: 20190207

REACTIONS (15)
  - Hypotension [None]
  - Musculoskeletal chest pain [None]
  - Thrombocytopenia [None]
  - Hypoperfusion [None]
  - Dizziness [None]
  - Anaemia [None]
  - Blood bilirubin increased [None]
  - Platelet transfusion [None]
  - Arrhythmia [None]
  - Cardiac arrest [None]
  - Back pain [None]
  - Nausea [None]
  - Packed red blood cell transfusion [None]
  - Hyponatraemia [None]
  - Loss of consciousness [None]

NARRATIVE: CASE EVENT DATE: 20190223
